FAERS Safety Report 8503698 (Version 3)
Quarter: 2013Q2

REPORT INFORMATION
  Report Type: Spontaneous
  Country: IT (occurrence: IT)
  Receive Date: 20120411
  Receipt Date: 20130514
  Transmission Date: 20140414
  Serious: Yes (Other)
  Sender: FDA-Public Use
  Company Number: IT-BAYER-2012-034372

PATIENT
  Age: 69 Year
  Sex: Female

DRUGS (2)
  1. NEXAVAR [Suspect]
     Indication: HEPATIC CANCER
     Dosage: DAILY DOSE 800 MG
     Route: 048
     Dates: start: 20090205, end: 20090406
  2. LUVION [Concomitant]
     Dosage: DAILY DOSE 100 MG
     Route: 048

REACTIONS (4)
  - Ascites [Recovering/Resolving]
  - Oedema peripheral [Recovering/Resolving]
  - Hepatic function abnormal [Recovering/Resolving]
  - Muscle atrophy [Recovering/Resolving]
